FAERS Safety Report 9891539 (Version 1)
Quarter: 2014Q1

REPORT INFORMATION
  Report Type: Spontaneous
  Country: US (occurrence: None)
  Receive Date: 20140210
  Receipt Date: 20140210
  Transmission Date: 20141002
  Serious: Yes (Hospitalization)
  Sender: FDA-Public Use
  Company Number: UTC-043936

PATIENT
  Age: 79 Year
  Sex: Male
  Weight: 109 kg

DRUGS (10)
  1. REMODULIN [Suspect]
     Indication: PULMONARY ARTERIAL HYPERTENSION
     Dosage: 0.04125 UG/KG 1 IN 1 MIN
     Route: 058
     Dates: start: 20130604
  2. LETAIRIS [Suspect]
     Indication: PRODUCT USED FOR UNKNOWN INDICATION
     Dates: start: 20130328
  3. ADICIRCA (TADALAFIL) (UNKNOWN) [Concomitant]
  4. REVATIO (SILDENAFIL CITRATE)(UNKNOWN) [Concomitant]
  5. PROAIR (FLUTICASONE PROPIONATE) [Concomitant]
  6. SYMBICORT (BUDESONIDE W/FORMOTEROL FUMARATE) (UNKNOWN) [Concomitant]
  7. SPIRIVA (TIOTROPIUM BROMIDE) (UNKNOWN) [Concomitant]
  8. VICODIN (UNKNOWN) [Concomitant]
  9. GABAPENTIN (UNKNOWN) [Concomitant]
  10. LASIX (FUROSEMIDE) (UNKNOWN) [Concomitant]

REACTIONS (9)
  - Oedema [None]
  - Fluid retention [None]
  - Dyspnoea [None]
  - Chills [None]
  - Neuralgia [None]
  - Blood pressure diastolic decreased [None]
  - Infusion site erythema [None]
  - Infusion site pain [None]
  - Infusion site infection [None]
